FAERS Safety Report 9244538 (Version 2)
Quarter: 2013Q2

REPORT INFORMATION
  Report Type: Spontaneous
  Country: GB (occurrence: GB)
  Receive Date: 20130422
  Receipt Date: 20130430
  Transmission Date: 20140414
  Serious: Yes (Death)
  Sender: FDA-Public Use
  Company Number: GB-ACCORD-017225

PATIENT
  Age: 75 Year
  Sex: Male

DRUGS (1)
  1. SIMVASTATIN [Suspect]
     Indication: PRODUCT USED FOR UNKNOWN INDICATION
     Dosage: INCREASED TO 20 MG FROM 17-SEP-2008 THEN INCREASED TO 40 MG FROM 10-NOV-2008
     Route: 065
     Dates: start: 20051108, end: 20110728

REACTIONS (1)
  - Idiopathic pulmonary fibrosis [Fatal]
